FAERS Safety Report 7675446-9 (Version None)
Quarter: 2011Q3

REPORT INFORMATION
  Report Type: 
  Country: None (occurrence: None)
  Receive Date: 20110810
  Receipt Date: 20110802
  Transmission Date: 20111222
  Serious: Yes (Disabling, Other)
  Sender: FDA-Public Use
  Company Number: PHHY2011GB69661

PATIENT
  Age: 50 Year
  Sex: Male

DRUGS (6)
  1. MONTELUKAST SODIUM [Concomitant]
     Dosage: 10 MG, QD
     Route: 048
     Dates: start: 20110201, end: 20110501
  2. PREDNISOLONE [Concomitant]
     Indication: BRONCHOPULMONARY ASPERGILLOSIS ALLERGIC
     Dosage: 30 MG, QD
     Route: 048
     Dates: start: 20110201, end: 20110501
  3. ITRACONAZOLE [Suspect]
     Dosage: 200 MG, BID
     Route: 048
     Dates: start: 20110401, end: 20110501
  4. ITRACONAZOLE [Suspect]
     Indication: BRONCHOPULMONARY ASPERGILLOSIS ALLERGIC
     Dosage: 200 MG, QD
     Route: 048
     Dates: start: 20110214
  5. SERETIDE [Concomitant]
     Dosage: 250 UG, QID
  6. COLISTIN SULFATE [Concomitant]
     Indication: PSEUDOMONAS INFECTION
     Dosage: 2 MIU, BID
     Dates: start: 20110201

REACTIONS (1)
  - COLOUR BLINDNESS ACQUIRED [None]
